FAERS Safety Report 11192989 (Version 1)
Quarter: 2015Q2

REPORT INFORMATION
  Report Type: Spontaneous
  Country: US (occurrence: None)
  Receive Date: 20150615
  Receipt Date: 20150615
  Transmission Date: 20150821
  Serious: No
  Sender: FDA-Public Use
  Company Number: None

PATIENT
  Age: 62 Year
  Sex: Male
  Weight: 81.65 kg

DRUGS (1)
  1. TEMOZOLOMIDE. [Suspect]
     Active Substance: TEMOZOLOMIDE
     Indication: GLIOBLASTOMA
     Dosage: ROUTE: ORAL 047 STRENGTH: 100MG  DOSE FORM: ORAL  FREQUENCY: QD
     Route: 048
     Dates: start: 20141204, end: 20150515

REACTIONS (1)
  - Disease progression [None]

NARRATIVE: CASE EVENT DATE: 20150515
